FAERS Safety Report 17034960 (Version 1)
Quarter: 2019Q4

REPORT INFORMATION
  Report Type: Spontaneous
  Country: US (occurrence: US)
  Receive Date: 20191115
  Receipt Date: 20191115
  Transmission Date: 20200122
  Serious: No
  Sender: FDA-Public Use
  Company Number: US-TEVA-2019-US-1135883

PATIENT
  Sex: Female

DRUGS (2)
  1. CLONAZEPAM TEVA [Suspect]
     Active Substance: CLONAZEPAM
     Indication: PANIC DISORDER
     Dosage: 0.5 MG
     Route: 065
     Dates: start: 2019
  2. TEVA ATENOLOL [Concomitant]
     Active Substance: ATENOLOL
     Indication: BLOOD PRESSURE MEASUREMENT

REACTIONS (9)
  - Anxiety [Unknown]
  - Salivary hypersecretion [Unknown]
  - Panic attack [Unknown]
  - Abdominal discomfort [Unknown]
  - Tremor [Unknown]
  - Palpitations [Unknown]
  - Nausea [Unknown]
  - Product substitution issue [Unknown]
  - Dizziness [Unknown]

NARRATIVE: CASE EVENT DATE: 20191003
